FAERS Safety Report 7597323-4 (Version None)
Quarter: 2011Q3

REPORT INFORMATION
  Report Type: 
  Country: None (occurrence: None)
  Receive Date: 20110708
  Receipt Date: 20110628
  Transmission Date: 20111222
  Serious: Yes (Hospitalization)
  Sender: FDA-Public Use
  Company Number: FR-PFIZER INC-2011139432

PATIENT
  Age: 56 Year
  Sex: Male
  Weight: 90 kg

DRUGS (4)
  1. LEUCOVORIN CALCIUM [Suspect]
     Indication: GASTRIC CANCER
     Dosage: 3040 MG, CYCLIC
     Route: 042
     Dates: start: 20091228, end: 20100215
  2. FLUOROURACIL [Suspect]
     Indication: GASTRIC CANCER
     Dosage: 3040 MG, CYCLIC
     Route: 040
     Dates: start: 20091228, end: 20100217
  3. IRINOTECAN HCL [Suspect]
     Indication: GASTRIC CANCER
     Dosage: 1368 MG, CYCLIC
     Route: 042
     Dates: start: 20091228, end: 20100215
  4. FLUOROURACIL [Suspect]
     Dosage: 22240 MG, CYCLIC
     Route: 041
     Dates: start: 20100301, end: 20100305

REACTIONS (1)
  - CHEST PAIN [None]
